FAERS Safety Report 19099253 (Version 1)
Quarter: 2021Q2

REPORT INFORMATION
  Report Type: Spontaneous
  Country: US (occurrence: US)
  Receive Date: 20210406
  Receipt Date: 20210406
  Transmission Date: 20210717
  Serious: Yes (Hospitalization, Congenital Anomaly, Other)
  Sender: FDA-Public Use
  Company Number: US-HQ SPECIALTY-US-2021INT000051

PATIENT
  Age: 76 Year
  Sex: Male

DRUGS (23)
  1. NEOSTIGMINE. [Suspect]
     Active Substance: NEOSTIGMINE METHYLSULFATE
     Indication: INTESTINAL PSEUDO-OBSTRUCTION
     Dosage: ON DAY 9 (0.4 MG,1 HR)
     Route: 041
  2. CLONIDINE. [Suspect]
     Active Substance: CLONIDINE
     Dosage: ON DAY 7 (0.2 MG,1 IN 8 HR)
     Route: 065
  3. SENNA                              /00142201/ [Concomitant]
     Active Substance: SENNA LEAF
     Indication: CONSTIPATION
     Dosage: UNK
     Route: 065
  4. DEXMEDETOMIDINE HYDROCHLORIDE. [Suspect]
     Active Substance: DEXMEDETOMIDINE HYDROCHLORIDE
     Indication: SEDATIVE THERAPY
     Dosage: 1.4 UG/KG,1 HR
     Route: 065
  5. NEOSTIGMINE. [Suspect]
     Active Substance: NEOSTIGMINE METHYLSULFATE
     Dosage: ON DAY 11 (0.4 MG,1 HR)
     Route: 041
  6. DOCUSATE [Concomitant]
     Active Substance: DOCUSATE
     Dosage: BOWEL REGIMEN INTENSIFIED
     Route: 065
  7. SENNA                              /00142201/ [Concomitant]
     Active Substance: SENNA LEAF
     Dosage: BOWEL REGIMEN INTENSIFIED
     Route: 065
  8. OXYCODONE [Suspect]
     Active Substance: OXYCODONE
     Indication: EXTUBATION
     Dosage: 60 MG (10 MG,1 IN 4 HR)
     Route: 048
  9. CLONIDINE. [Suspect]
     Active Substance: CLONIDINE
     Indication: PAIN
     Dosage: 0.3 MG (0.1 MG,1 IN 8 HR)
     Route: 065
  10. GABAPENTIN. [Suspect]
     Active Substance: GABAPENTIN
     Indication: PAIN
     Dosage: 300 MG (100 MG,1 IN 8 HR)
     Route: 065
  11. POLYETHYLENE GLYCOL [Concomitant]
     Active Substance: POLYETHYLENE GLYCOLS
     Dosage: BOWEL REGIMEN INTENSIFIED
     Route: 065
  12. POLYETHYLENE GLYCOL [Concomitant]
     Active Substance: POLYETHYLENE GLYCOLS
     Indication: CONSTIPATION
     Dosage: UNK
     Route: 065
  13. BISACODYL. [Concomitant]
     Active Substance: BISACODYL
     Dosage: BOWEL REGIMEN INTENSIFIED
     Route: 065
  14. METOCLOPRAMIDE. [Concomitant]
     Active Substance: METOCLOPRAMIDE
     Indication: INTESTINAL PSEUDO-OBSTRUCTION
     Dosage: 40 MG (10 MG,1 IN 6 HR)
     Route: 042
  15. DEXMEDETOMIDINE HYDROCHLORIDE. [Suspect]
     Active Substance: DEXMEDETOMIDINE HYDROCHLORIDE
     Indication: ANALGESIC THERAPY
  16. CLONIDINE. [Suspect]
     Active Substance: CLONIDINE
     Dosage: 0.3 MG (0.1 MG,1 IN 8 HR)
     Route: 065
  17. PROPOFOL. [Concomitant]
     Active Substance: PROPOFOL
     Indication: SEDATIVE THERAPY
     Dosage: UNK
     Route: 065
  18. ACETAMINOPHEN. [Suspect]
     Active Substance: ACETAMINOPHEN
     Indication: PAIN
     Dosage: AS NEEDED
     Route: 065
  19. FENTANYL. [Suspect]
     Active Substance: FENTANYL
     Indication: ANALGESIC THERAPY
     Route: 065
  20. FENTANYL. [Suspect]
     Active Substance: FENTANYL
     Indication: SEDATIVE THERAPY
  21. DOCUSATE [Concomitant]
     Active Substance: DOCUSATE
     Indication: CONSTIPATION
     Dosage: UNK
     Route: 065
  22. PROPOFOL. [Concomitant]
     Active Substance: PROPOFOL
     Dosage: (30 UG/KG,1 MIN)
     Route: 065
  23. BISACODYL. [Concomitant]
     Active Substance: BISACODYL
     Indication: CONSTIPATION
     Dosage: UNK
     Route: 065

REACTIONS (5)
  - Intestinal pseudo-obstruction [Recovered/Resolved]
  - Bradycardia [Recovered/Resolved]
  - Cardiac arrest [Recovered/Resolved]
  - Hypotension [Recovered/Resolved]
  - Drug interaction [Unknown]
